FAERS Safety Report 7673340-0 (Version None)
Quarter: 2011Q3

REPORT INFORMATION
  Report Type: 
  Country: None (occurrence: None)
  Receive Date: 20110810
  Receipt Date: 20110728
  Transmission Date: 20111222
  Serious: Yes (Hospitalization)
  Sender: FDA-Public Use
  Company Number: FR-JNJFOC-20110800474

PATIENT
  Age: 60 Year
  Sex: Male

DRUGS (7)
  1. ISENTRESS [Suspect]
  2. VIREAD [Suspect]
     Indication: HIV INFECTION
     Dates: start: 20090813, end: 20100623
  3. ISENTRESS [Suspect]
     Indication: HIV INFECTION
     Dates: start: 20090813
  4. PREZISTA [Suspect]
     Route: 048
     Dates: start: 20090813
  5. NORVIR [Suspect]
     Indication: HIV INFECTION
     Dates: start: 20090813
  6. NORVIR [Suspect]
  7. PREZISTA [Suspect]
     Indication: HIV INFECTION
     Route: 048

REACTIONS (1)
  - LACTIC ACIDOSIS [None]
